FAERS Safety Report 6568379-2 (Version None)
Quarter: 2010Q1

REPORT INFORMATION
  Report Type: 
  Country: None (occurrence: None)
  Receive Date: 20100203
  Receipt Date: 20100122
  Transmission Date: 20100710
  Serious: Yes (Hospitalization)
  Sender: FDA-Public Use
  Company Number: IN-SANOFI-AVENTIS-2010SA003907

PATIENT
  Age: 3 Month
  Sex: Male

DRUGS (4)
  1. FUROSEMIDE [Suspect]
  2. SPIRONOLACTONE [Suspect]
  3. ENALAPRIL [Suspect]
  4. DIGOXIN [Suspect]

REACTIONS (3)
  - HYPERKALAEMIA [None]
  - RENAL FAILURE [None]
  - THERAPEUTIC AGENT TOXICITY [None]
